FAERS Safety Report 11242710 (Version 1)
Quarter: 2015Q3

REPORT INFORMATION
  Report Type: Spontaneous
  Country: SE (occurrence: None)
  Receive Date: 20150702
  Receipt Date: 20150702
  Transmission Date: 20151125
  Serious: Yes (Hospitalization, Other)
  Sender: FDA-Public Use
  Company Number: ADR-2015-01215

PATIENT
  Age: 18 Year
  Sex: Male
  Weight: 44 kg

DRUGS (1)
  1. LIORESAL [Suspect]
     Active Substance: BACLOFEN

REACTIONS (6)
  - Respiratory tract infection [None]
  - Hyperhidrosis [None]
  - Fatigue [None]
  - Incision site swelling [None]
  - Catheter site abscess [None]
  - Incision site erythema [None]
